FAERS Safety Report 11179359 (Version 3)
Quarter: 2018Q4

REPORT INFORMATION
  Report Type: Spontaneous
  Country: EE (occurrence: EE)
  Receive Date: 20150611
  Receipt Date: 20181227
  Transmission Date: 20190204
  Serious: Yes (Death, Hospitalization)
  Sender: FDA-Public Use
  Company Number: EE-AMGEN-ESTSP2015055728

PATIENT
  Age: 72 Year
  Sex: Male

DRUGS (9)
  1. NORVASC [Concomitant]
     Active Substance: AMLODIPINE BESYLATE
     Indication: HYPERTENSION
     Dosage: 5MG 1X/DAY
     Route: 048
  2. BONVIVA [Concomitant]
     Active Substance: IBANDRONATE SODIUM
     Indication: OSTEOPOROSIS
     Dosage: 150MG 1X/MONTH
     Route: 048
  3. DICLOFENAC [Concomitant]
     Active Substance: DICLOFENAC
     Indication: RHEUMATOID ARTHRITIS
     Dosage: 100MG 1X/DAY
     Route: 065
  4. BETALOC [Concomitant]
     Active Substance: METOPROLOL TARTRATE
     Indication: HYPERTENSION
     Dosage: 50MG 1X/DAY
     Route: 048
  5. PREDNISOLON-RICHTER /00016201/ [Suspect]
     Active Substance: PREDNISOLONE
     Indication: RHEUMATOID ARTHRITIS
     Dosage: 5 MG, 1X/DAY, FREQ: 1 DAY; INTERVAL: 1
     Route: 048
     Dates: start: 20121217
  6. FOLVERLAN [Concomitant]
     Active Substance: FOLIC ACID
     Dosage: 5 MG 1X/DAY, FREQ: 1 DAY ; INTERVAL: 1
  7. TREXAN [Suspect]
     Active Substance: METHOTREXATE SODIUM
     Indication: RHEUMATOID ARTHRITIS
     Dosage: 12.5 MG, WEEKLY 1.7857MG, FREQ:1 WEEK,INTERVAL: 1
     Route: 048
     Dates: start: 20121217
  8. ENBREL [Suspect]
     Active Substance: ETANERCEPT
     Indication: RHEUMATOID ARTHRITIS
     Dosage: 50 MG, 1X/DAY, FREQ:1 DAY,INTERVAL: 1
     Route: 058
     Dates: start: 20121217
  9. RANIBERL [Concomitant]
     Dosage: 150MG 1X/DAY
     Route: 048

REACTIONS (6)
  - Cardiac failure acute [Fatal]
  - Renal failure [Fatal]
  - Dyspnoea [Fatal]
  - Acute respiratory failure [Fatal]
  - Pneumonia [Fatal]
  - Sepsis [Unknown]

NARRATIVE: CASE EVENT DATE: 20141212
